FAERS Safety Report 4686975-4 (Version None)
Quarter: 2005Q2

REPORT INFORMATION
  Report Type: 
  Country: None (occurrence: None)
  Receive Date: 20050608
  Receipt Date: 20050523
  Transmission Date: 20051028
  Serious: Yes (Hospitalization)
  Sender: FDA-Public Use
  Company Number: US134445

PATIENT
  Age: 41 Year
  Sex: Male
  Weight: 110 kg

DRUGS (5)
  1. ENBREL [Suspect]
     Indication: POLYARTHRITIS
     Dosage: 25 MG, SC
     Route: 058
     Dates: start: 20041001, end: 20050401
  2. METHOTREXATE [Suspect]
  3. PREDNISOLONE [Concomitant]
  4. DICLOFENAC SODIUM [Concomitant]
  5. TERIPARATIDE [Concomitant]

REACTIONS (5)
  - C-REACTIVE PROTEIN INCREASED [None]
  - DISEASE RECURRENCE [None]
  - ENDOCARDITIS [None]
  - OSTEOARTHRITIS [None]
  - TOOTH INFECTION [None]
